FAERS Safety Report 13475525 (Version 1)
Quarter: 2017Q2

REPORT INFORMATION
  Report Type: Spontaneous
  Country: US (occurrence: US)
  Receive Date: 20170424
  Receipt Date: 20170424
  Transmission Date: 20170830
  Serious: No
  Sender: FDA-Public Use
  Company Number: None

PATIENT
  Age: 28 Year
  Sex: Female

DRUGS (1)
  1. INFLIXIMAB [Suspect]
     Active Substance: INFLIXIMAB
     Indication: COLITIS ULCERATIVE
     Dosage: 350 MG OTHER IV
     Route: 042
     Dates: start: 20140611, end: 20151214

REACTIONS (5)
  - Lupus-like syndrome [None]
  - Infusion related reaction [None]
  - Antinuclear antibody positive [None]
  - Asthenia [None]
  - Arthritis [None]

NARRATIVE: CASE EVENT DATE: 20151214
